FAERS Safety Report 17649234 (Version 1)
Quarter: 2020Q2

REPORT INFORMATION
  Report Type: Spontaneous
  Country: US (occurrence: US)
  Receive Date: 20200409
  Receipt Date: 20200409
  Transmission Date: 20200713
  Serious: Yes (Other)
  Sender: FDA-Public Use
  Company Number: US-SA-2020SA088907

PATIENT
  Sex: Male

DRUGS (1)
  1. ZANTAC 150 (RANITIDINE HYDROCHLORIDE) [Suspect]
     Active Substance: RANITIDINE HYDROCHLORIDE
     Dosage: UNK (TOOK IT AS PRESCRIBED)
     Dates: start: 2014, end: 2019

REACTIONS (3)
  - Anxiety [Unknown]
  - Colorectal cancer [Unknown]
  - Pain [Unknown]

NARRATIVE: CASE EVENT DATE: 2019
